FAERS Safety Report 8359858-6 (Version None)
Quarter: 2012Q2

REPORT INFORMATION
  Report Type: 
  Country: None (occurrence: None)
  Receive Date: 20120515
  Receipt Date: 20120507
  Transmission Date: 20120825
  Serious: Yes (Other)
  Sender: FDA-Public Use
  Company Number: JP-ASTELLAS-2012JP004033

PATIENT
  Age: 19 Year
  Sex: Female

DRUGS (6)
  1. PROGRAF [Suspect]
     Dosage: 0.03 MG/KG, UNKNOWN/D
     Route: 048
  2. BUSULFAN [Concomitant]
     Indication: BONE MARROW CONDITIONING REGIMEN
     Route: 065
  3. METHOTREXATE [Concomitant]
     Indication: PROPHYLAXIS AGAINST GRAFT VERSUS HOST DISEASE
     Route: 065
  4. PREDNISOLONE [Concomitant]
     Route: 065
  5. CYCLOPHOSPHAMIDE [Concomitant]
     Indication: BONE MARROW CONDITIONING REGIMEN
     Route: 065
  6. PROGRAF [Suspect]
     Indication: PROPHYLAXIS AGAINST GRAFT VERSUS HOST DISEASE
     Dosage: 0.03 MG/KG, UNKNOWN/D
     Route: 065

REACTIONS (3)
  - DRUG INEFFECTIVE [None]
  - POST TRANSPLANT DISTAL LIMB SYNDROME [None]
  - ACUTE GRAFT VERSUS HOST DISEASE [None]
